FAERS Safety Report 6526394-9 (Version None)
Quarter: 2009Q4

REPORT INFORMATION
  Report Type: 
  Country: None (occurrence: None)
  Receive Date: 20091228
  Receipt Date: 20091217
  Transmission Date: 20100525
  Serious: No
  Sender: FDA-Public Use
  Company Number: 457103

PATIENT
  Sex: Female
  Weight: 86.3 kg

DRUGS (2)
  1. FENTANYL CITRATE [Suspect]
     Indication: DRUG USE FOR UNKNOWN INDICATION
     Dosage: 500 MCG, INTRAVENOUS; 100 MCG, INTRAVENOUS
     Route: 042
     Dates: start: 20091215, end: 20091216
  2. FENTANYL CITRATE [Suspect]
     Indication: DRUG USE FOR UNKNOWN INDICATION
     Dosage: 500 MCG, INTRAVENOUS; 100 MCG, INTRAVENOUS
     Route: 042
     Dates: start: 20091216, end: 20091216

REACTIONS (1)
  - PRURITUS [None]
